FAERS Safety Report 23204326 (Version 1)
Quarter: 2023Q4

REPORT INFORMATION
  Report Type: Spontaneous
  Country: US (occurrence: US)
  Receive Date: 20231120
  Receipt Date: 20231120
  Transmission Date: 20240110
  Serious: No
  Sender: FDA-Public Use
  Company Number: US-AMGEN-USASP2023204558

PATIENT
  Age: 37 Year
  Sex: Male

DRUGS (4)
  1. ROMOSOZUMAB [Suspect]
     Active Substance: ROMOSOZUMAB
     Indication: End stage renal disease
     Dosage: UNK, QMO
     Route: 065
  2. ROMOSOZUMAB [Suspect]
     Active Substance: ROMOSOZUMAB
     Indication: Off label use
  3. TERIPARATIDE [Concomitant]
     Active Substance: TERIPARATIDE
  4. ABALOPARATIDE [Concomitant]
     Active Substance: ABALOPARATIDE

REACTIONS (1)
  - Off label use [Unknown]
